FAERS Safety Report 8799054 (Version 3)
Quarter: 2012Q4

REPORT INFORMATION
  Report Type: 
  Country: JP (occurrence: JP)
  Receive Date: 20120920
  Receipt Date: 20121214
  Transmission Date: 20130627
  Serious: Yes (Life-Threatening)
  Sender: FDA-Public Use
  Company Number: JP-NOVOPROD-359612

PATIENT
  Age: 79 Year
  Sex: Male
  Weight: 48 kg

DRUGS (14)
  1. VICTOZA HIKACHU INJECTION [Suspect]
     Indication: TYPE 2 DIABETES MELLITUS
     Dosage: 0.3 mg, qd
     Route: 058
     Dates: start: 20110117
  2. VICTOZA HIKACHU INJECTION [Suspect]
     Dosage: 0.9 mg, qd
     Route: 058
  3. VICTOZA HIKACHU INJECTION [Suspect]
     Dosage: 0.6 mg, qd
     Route: 058
  4. VICTOZA HIKACHU INJECTION [Suspect]
     Dosage: 0.3 mg, qd
     Route: 058
     Dates: end: 20120910
  5. LEVEMIR CHU [Concomitant]
     Indication: TYPE 2 DIABETES MELLITUS
     Dosage: 10 U, qd
     Route: 058
     Dates: start: 20120130
  6. BAYASPIRIN [Concomitant]
     Indication: ANGINA PECTORIS
     Dosage: 1 Tab, qd
     Route: 048
  7. PLAVIX [Concomitant]
     Indication: HYPERTENSION
     Dosage: 75 mg, qd
     Route: 048
  8. BLOPRESS [Concomitant]
     Indication: HYPERTENSION
     Dosage: 8 mg, qd
     Route: 048
  9. AMARYL [Concomitant]
     Indication: TYPE 2 DIABETES MELLITUS
     Dosage: 1 mg, qd
     Route: 048
  10. MAGLAX [Concomitant]
     Indication: TYPE 2 DIABETES MELLITUS
     Dosage: 1000 mg, qd
     Route: 048
  11. PROMAC                             /01312301/ [Concomitant]
     Dosage: 150 mg, qd
     Route: 048
  12. MUCOSTA [Concomitant]
     Indication: TYPE 2 DIABETES MELLITUS
     Dosage: 3 Tab, qd
     Route: 048
  13. PURSENNID /00142207/ [Concomitant]
     Indication: CONSTIPATION
     Dosage: 1 Tab, qd
     Route: 048
  14. DAIKENTYUTO [Concomitant]
     Dosage: 3 packs
     Route: 048

REACTIONS (1)
  - Pancreatic carcinoma metastatic [Unknown]
